FAERS Safety Report 7079494-1 (Version None)
Quarter: 2010Q4

REPORT INFORMATION
  Report Type: 
  Country: None (occurrence: None)
  Receive Date: 20101102
  Receipt Date: 20101018
  Transmission Date: 20110411
  Serious: Yes (Hospitalization)
  Sender: FDA-Public Use
  Company Number: DE-AMGEN-DEUCT2010000482

PATIENT

DRUGS (16)
  1. ENBREL FERTIGSPRITZE [Suspect]
     Dosage: 50 MG, QWK
     Route: 058
     Dates: start: 20100623, end: 20100823
  2. SIMVASTATIN [Concomitant]
     Route: 048
  3. TRIAMTERENE AND HYDROCHLOROTHIAZIDE [Concomitant]
     Indication: HYPERTENSION
     Route: 048
  4. LEVEMIR [Concomitant]
     Indication: TYPE 2 DIABETES MELLITUS
     Dosage: UNKNOWN
     Dates: start: 20090101
  5. NOVORAPID [Concomitant]
     Indication: TYPE 2 DIABETES MELLITUS
     Dosage: UNKNOWN
     Dates: start: 20090101
  6. LEVOTHYROXINE SODIUM [Concomitant]
     Indication: HYPOTHYROIDISM
     Dates: start: 20090701
  7. METHOTREXATE SODIUM [Concomitant]
     Indication: PSORIATIC ARTHROPATHY
     Route: 058
     Dates: start: 19800101
  8. METHYLPREDNISOLONE [Concomitant]
     Indication: PSORIATIC ARTHROPATHY
     Route: 048
     Dates: start: 20011001
  9. DICLOFENAC SODIUM [Concomitant]
     Indication: PSORIATIC ARTHROPATHY
     Route: 048
     Dates: start: 20100601, end: 20100801
  10. FENTANYL [Concomitant]
     Indication: PSORIATIC ARTHROPATHY
     Dosage: DELBERATING 15 UG/H, CHANGED EVERY 3 DAYS
     Route: 062
     Dates: start: 20100801
  11. RABEPRAZOLE SODIUM [Concomitant]
     Indication: GASTROOESOPHAGEAL REFLUX PROPHYLAXIS
     Route: 048
  12. EUTHYROX [Concomitant]
     Route: 048
  13. COAPROVEL [Concomitant]
     Indication: CORONARY ARTERY DISEASE
     Route: 048
  14. ERYFER [Concomitant]
     Indication: ANAEMIA
  15. ACTONEL [Concomitant]
     Indication: OSTEOPOROSIS
  16. ACETYLSALICYLIC ACID [Concomitant]
     Indication: CORONARY ARTERY DISEASE
     Route: 048

REACTIONS (2)
  - CONDITION AGGRAVATED [None]
  - CORONARY ARTERY DISEASE [None]
